FAERS Safety Report 9162022 (Version 3)
Quarter: 2013Q3

REPORT INFORMATION
  Report Type: Spontaneous
  Country: US (occurrence: None)
  Receive Date: 20130220
  Receipt Date: 20130702
  Transmission Date: 20140515
  Serious: Yes (Hospitalization)
  Sender: FDA-Public Use
  Company Number: 2013SGN00064

PATIENT
  Age: 42 Year
  Sex: Male
  Weight: 75.3 kg

DRUGS (5)
  1. ADCETRIS [Suspect]
     Indication: B-CELL SMALL LYMPHOCYTIC LYMPHOMA
     Dates: start: 20121004, end: 20130201
  2. EMTRICITABINE [Concomitant]
  3. TENOFOVIR (TENOFOVIR) [Concomitant]
  4. DARUNAVIR (DARUNAVIR) [Concomitant]
  5. RITONAVIR (RITONAVIR) [Concomitant]

REACTIONS (3)
  - Febrile neutropenia [None]
  - Peripheral sensory neuropathy [None]
  - Lethargy [None]
